FAERS Safety Report 8217334-5 (Version None)
Quarter: 2012Q1

REPORT INFORMATION
  Report Type: 
  Country: None (occurrence: None)
  Receive Date: 20120313
  Receipt Date: 20120227
  Transmission Date: 20120608
  Serious: Yes (Hospitalization)
  Sender: FDA-Public Use
  Company Number: BR-007825

PATIENT
  Age: 11 Year
  Sex: Male

DRUGS (1)
  1. MINIRIN [Suspect]
     Indication: DIABETES INSIPIDUS
     Dosage: (0.1 MG BID ORAL)
     Route: 048

REACTIONS (4)
  - CONVULSION [None]
  - HYPOTENSION [None]
  - DYSPNOEA [None]
  - HYPERNATRAEMIA [None]
